FAERS Safety Report 6901123-5 (Version None)
Quarter: 2010Q3

REPORT INFORMATION
  Report Type: 
  Country: None (occurrence: None)
  Receive Date: 20100803
  Receipt Date: 20100722
  Transmission Date: 20110219
  Serious: Yes (Hospitalization, Other)
  Sender: FDA-Public Use
  Company Number: BR-MEDIMMUNE-MEDI-0011203

PATIENT
  Sex: Male
  Weight: 4.8 kg

DRUGS (10)
  1. SYNAGIS [Suspect]
     Route: 030
     Dates: start: 20090101
  2. ERYTHROMYCIN ESTOLATE [Concomitant]
     Route: 048
     Dates: start: 20090411
  3. PREDIMIZOLINA [Concomitant]
     Indication: COUGH
     Route: 048
     Dates: start: 20100501
  4. VENTIDE [Concomitant]
     Indication: INHALATION THERAPY
     Dates: start: 20090411
  5. RANITIDINE [Concomitant]
     Indication: GASTRITIS
     Route: 048
  6. BROMOPRIDE [Concomitant]
     Route: 048
  7. VITAMIDYNE A + D [Concomitant]
     Indication: SUPPLEMENTATION THERAPY
     Route: 048
  8. FERROUS SULFATE [Concomitant]
     Route: 048
     Dates: start: 20100501
  9. FENOTEROL HYDROBROMIDE [Concomitant]
     Indication: NASAL DECONGESTION THERAPY
     Dates: start: 20100501
  10. SERUM [Concomitant]
     Indication: NASAL DECONGESTION THERAPY
     Dates: start: 20100501

REACTIONS (13)
  - ANAEMIA [None]
  - DEHYDRATION [None]
  - EYE OPERATION [None]
  - GASTRITIS [None]
  - HAEMORRHAGE [None]
  - INFECTION [None]
  - INGUINAL HERNIA [None]
  - INTESTINAL OPERATION [None]
  - INTESTINAL PERFORATION [None]
  - NASOPHARYNGITIS [None]
  - SURGERY [None]
  - VASCULAR RUPTURE [None]
  - VOMITING [None]
